FAERS Safety Report 25728485 (Version 1)
Quarter: 2025Q3

REPORT INFORMATION
  Report Type: Report from Study
  Country: US (occurrence: US)
  Receive Date: 20250826
  Receipt Date: 20250826
  Transmission Date: 20251021
  Serious: Yes (Other)
  Sender: TAKEDA
  Company Number: US-TAKEDA-2025TUS074423

PATIENT
  Sex: Female
  Weight: 165 kg

DRUGS (14)
  1. HUMAN IMMUNOGLOBULIN G [Suspect]
     Active Substance: HUMAN IMMUNOGLOBULIN G
     Indication: Congenital hypogammaglobulinaemia
     Dosage: 8 GRAM, 1/WEEK
  2. ACETAMINOPHEN [Concomitant]
     Active Substance: ACETAMINOPHEN
  3. PEPCID AC [Concomitant]
     Active Substance: FAMOTIDINE
  4. TYLENOL EXTRA STRENGTH [Concomitant]
     Active Substance: ACETAMINOPHEN
  5. ZOFRAN [Concomitant]
     Active Substance: ONDANSETRON HYDROCHLORIDE
  6. TRELEGY ELLIPTA [Concomitant]
     Active Substance: FLUTICASONE FUROATE\UMECLIDINIUM BROMIDE\VILANTEROL TRIFENATATE
  7. ALEVE [Concomitant]
     Active Substance: NAPROXEN SODIUM
  8. HYDROCORTISONE [Concomitant]
     Active Substance: HYDROCORTISONE
  9. GABAPENTIN [Concomitant]
     Active Substance: GABAPENTIN
  10. LAMICTAL [Concomitant]
     Active Substance: LAMOTRIGINE
  11. FLUDROCORTISONE ACETATE [Concomitant]
     Active Substance: FLUDROCORTISONE ACETATE
  12. Lmx [Concomitant]
  13. KLONOPIN [Concomitant]
     Active Substance: CLONAZEPAM
  14. TRAZODONE HCL [Concomitant]
     Active Substance: TRAZODONE HYDROCHLORIDE

REACTIONS (1)
  - Follicular lymphoma [Unknown]
